FAERS Safety Report 23439753 (Version 1)
Quarter: 2024Q1

REPORT INFORMATION
  Report Type: Spontaneous
  Country: US (occurrence: US)
  Receive Date: 20240124
  Receipt Date: 20240124
  Transmission Date: 20240410
  Serious: Yes (Hospitalization)
  Sender: FDA-Public Use
  Company Number: US-BIOMARINAP-US-2024-155362

PATIENT

DRUGS (1)
  1. VIMIZIM [Suspect]
     Active Substance: ELOSULFASE ALFA
     Indication: Mucopolysaccharidosis IV
     Dosage: 62 MILLIGRAM, QW
     Route: 042
     Dates: start: 201909

REACTIONS (1)
  - Central venous catheterisation [Unknown]

NARRATIVE: CASE EVENT DATE: 20231218
